FAERS Safety Report 8904699 (Version 1)
Quarter: 2012Q4

REPORT INFORMATION
  Report Type: 
  Country: DE (occurrence: DE)
  Receive Date: 20121112
  Receipt Date: 20121112
  Transmission Date: 20130627
  Serious: Yes (Death, Life-Threatening, Hospitalization, Other)
  Sender: FDA-Public Use
  Company Number: DE-PFIZER INC-2012278415

PATIENT
  Age: 45 Year
  Sex: Male

DRUGS (3)
  1. NEURONTIN [Suspect]
     Indication: VASCULITIS
     Dosage: 400 mg, 1x/day
     Route: 048
     Dates: start: 2001, end: 2012
  2. ENALAPRIL [Concomitant]
     Dosage: 1 DF, 1x/day
     Route: 048
  3. OMEPRAZOLE [Concomitant]
     Dosage: 1 DF, 1x/day
     Route: 048

REACTIONS (3)
  - Death [Fatal]
  - Acute myocardial infarction [Fatal]
  - Ventricular fibrillation [Fatal]
